FAERS Safety Report 4307610-0 (Version None)
Quarter: 2004Q1

REPORT INFORMATION
  Report Type: 
  Country: None (occurrence: None)
  Receive Date: 20040227
  Receipt Date: 20040227
  Transmission Date: 20041129
  Serious: Yes (Life-Threatening, Hospitalization)
  Sender: FDA-Public Use
  Company Number: None

PATIENT
  Age: 49 Year
  Sex: Female
  Weight: 153 kg

DRUGS (9)
  1. ALTACE [Suspect]
     Indication: CARDIAC FAILURE CONGESTIVE
     Dosage: 10 MG DAILY ORAL
     Route: 048
     Dates: start: 20031112, end: 20031112
  2. ALTACE [Suspect]
     Indication: HYPERTENSION
     Dosage: 10 MG DAILY ORAL
     Route: 048
     Dates: start: 20031112, end: 20031112
  3. LASIX [Concomitant]
  4. DIGOXIN [Concomitant]
  5. ASPIRN [Concomitant]
  6. LOVENOX [Concomitant]
  7. NUBAIN [Concomitant]
  8. VICODIN [Concomitant]
  9. INSULIN [Concomitant]

REACTIONS (6)
  - ANGIONEUROTIC OEDEMA [None]
  - CHEST PAIN [None]
  - DYSPNOEA [None]
  - LOCAL SWELLING [None]
  - SWELLING FACE [None]
  - SWOLLEN TONGUE [None]
